FAERS Safety Report 5605283-8 (Version None)
Quarter: 2008Q1

REPORT INFORMATION
  Report Type: 
  Country: None (occurrence: None)
  Receive Date: 20080129
  Receipt Date: 20080121
  Transmission Date: 20080703
  Serious: Yes (Other)
  Sender: FDA-Public Use
  Company Number: GB-PFIZER INC-2008006190

PATIENT
  Sex: Female
  Weight: 70 kg

DRUGS (3)
  1. CHANTIX [Suspect]
     Indication: SMOKING CESSATION THERAPY
     Route: 048
     Dates: start: 20070921, end: 20071130
  2. AMOXICILLIN [Concomitant]
     Route: 048
     Dates: start: 20071005, end: 20071012
  3. METRONIDAZOLE [Concomitant]
     Route: 048
     Dates: start: 20071005, end: 20071012

REACTIONS (4)
  - DEPRESSION [None]
  - PANIC REACTION [None]
  - SOCIAL AVOIDANT BEHAVIOUR [None]
  - TEARFULNESS [None]
